FAERS Safety Report 23089705 (Version 2)
Quarter: 2023Q4

REPORT INFORMATION
  Report Type: Spontaneous
  Country: JP (occurrence: JP)
  Receive Date: 20231020
  Receipt Date: 20231109
  Transmission Date: 20240110
  Serious: Yes (Other)
  Sender: FDA-Public Use
  Company Number: JP-002147023-NVSJ2023JP013775

PATIENT
  Age: 80 Year
  Sex: Male

DRUGS (5)
  1. NEORAL [Suspect]
     Active Substance: CYCLOSPORINE
     Indication: Drug reaction with eosinophilia and systemic symptoms
     Dosage: FIRST DOSE FROM 150 MG
     Route: 048
  2. NEORAL [Suspect]
     Active Substance: CYCLOSPORINE
     Dosage: 3 MG/KG
     Route: 065
  3. NEORAL [Suspect]
     Active Substance: CYCLOSPORINE
     Dosage: AFTER 3 WEEKS, 125 MG
     Route: 048
  4. NEORAL [Suspect]
     Active Substance: CYCLOSPORINE
     Dosage: AFTER 4 WEEKS(DAY 49),50 MG
     Route: 048
  5. PREDNISOLONE [Suspect]
     Active Substance: PREDNISOLONE
     Indication: Product used for unknown indication
     Dosage: 50 MG
     Route: 065

REACTIONS (6)
  - Cytomegalovirus enterocolitis [Recovered/Resolved]
  - Oesophageal carcinoma [Unknown]
  - Concomitant disease progression [Unknown]
  - Drug reaction with eosinophilia and systemic symptoms [Unknown]
  - Disease progression [Unknown]
  - Product use in unapproved indication [Unknown]
